FAERS Safety Report 14745989 (Version 1)
Quarter: 2018Q2

REPORT INFORMATION
  Report Type: Report from Study
  Country: TR (occurrence: TR)
  Receive Date: 20180411
  Receipt Date: 20180411
  Transmission Date: 20180711
  Serious: Yes (Other)
  Sender: FDA-Public Use
  Company Number: TR-ROCHE-2104228

PATIENT

DRUGS (10)
  1. IMATINIB [Suspect]
     Active Substance: IMATINIB
     Indication: NEOPLASM MALIGNANT
     Route: 065
  2. CRIZOTINIB [Suspect]
     Active Substance: CRIZOTINIB
     Indication: NEOPLASM MALIGNANT
     Route: 065
  3. REGORAFENIB. [Suspect]
     Active Substance: REGORAFENIB
     Indication: NEOPLASM MALIGNANT
     Route: 065
  4. VEMURAFENIB. [Suspect]
     Active Substance: VEMURAFENIB
     Indication: NEOPLASM MALIGNANT
     Route: 065
  5. AXITINIB [Suspect]
     Active Substance: AXITINIB
     Indication: NEOPLASM MALIGNANT
     Route: 065
  6. ERLOTINIB [Suspect]
     Active Substance: ERLOTINIB
     Indication: NEOPLASM MALIGNANT
     Route: 065
  7. PAZOPANIB [Suspect]
     Active Substance: PAZOPANIB
     Indication: NEOPLASM MALIGNANT
     Route: 065
  8. SORAFENIB [Suspect]
     Active Substance: SORAFENIB
     Indication: NEOPLASM MALIGNANT
     Route: 065
  9. DABRAFENIB [Suspect]
     Active Substance: DABRAFENIB
     Indication: NEOPLASM MALIGNANT
     Route: 065
  10. SUNITINIB [Suspect]
     Active Substance: SUNITINIB
     Indication: NEOPLASM MALIGNANT
     Route: 065

REACTIONS (28)
  - Haematuria [Unknown]
  - Constipation [Unknown]
  - Pruritus [Unknown]
  - Alopecia [Unknown]
  - Nail discolouration [Unknown]
  - Alanine aminotransferase abnormal [Unknown]
  - Acute kidney injury [Unknown]
  - Anaemia [Unknown]
  - Platelet count decreased [Unknown]
  - Cough [Unknown]
  - Fatigue [Unknown]
  - Dry skin [Recovered/Resolved]
  - Nausea [Unknown]
  - Blood bilirubin abnormal [Unknown]
  - Headache [Unknown]
  - Insomnia [Unknown]
  - White blood cell count decreased [Unknown]
  - Vomiting [Unknown]
  - Stomatitis [Unknown]
  - Dermatitis acneiform [Unknown]
  - Pain [Unknown]
  - Aspartate aminotransferase abnormal [Unknown]
  - Atrial fibrillation [Unknown]
  - Diarrhoea [Recovered/Resolved]
  - Salivary duct inflammation [Unknown]
  - Lung infection [Unknown]
  - Depression [Unknown]
  - Dry eye [Recovered/Resolved]
